FAERS Safety Report 5519523-7 (Version None)
Quarter: 2007Q4

REPORT INFORMATION
  Report Type: 
  Country: None (occurrence: None)
  Receive Date: 20071116
  Receipt Date: 20071113
  Transmission Date: 20080405
  Serious: Yes (Other)
  Sender: FDA-Public Use
  Company Number: A0694218A

PATIENT
  Age: 89 Year
  Sex: Male

DRUGS (10)
  1. RANITIDINE HCL [Suspect]
     Indication: GASTRIC ULCER
     Dosage: 150MG PER DAY
     Route: 048
     Dates: start: 20060101
  2. INSPRA [Concomitant]
  3. FERROUS SULFATE TAB [Concomitant]
  4. LASIX [Concomitant]
  5. FOLIC ACID [Concomitant]
  6. ACIDOPHILUS [Concomitant]
  7. DIOVAN [Concomitant]
  8. DIGOXIN [Concomitant]
  9. UNSPECIFIED MEDICATION [Concomitant]
  10. CENTRUM SILVER [Concomitant]

REACTIONS (2)
  - DEMENTIA [None]
  - DEMENTIA ALZHEIMER'S TYPE [None]
